FAERS Safety Report 17851777 (Version 2)
Quarter: 2021Q1

REPORT INFORMATION
  Report Type: Spontaneous
  Country: BE (occurrence: BE)
  Receive Date: 20200602
  Receipt Date: 20210122
  Transmission Date: 20210419
  Serious: Yes (Hospitalization, Other)
  Sender: FDA-Public Use
  Company Number: BE-SAMSUNG BIOEPIS-SB-2020-18021

PATIENT
  Age: 7 Month
  Sex: Female

DRUGS (4)
  1. INFLIXIMAB [Suspect]
     Active Substance: INFLIXIMAB
     Indication: FOETAL EXPOSURE DURING PREGNANCY
     Dosage: UNKNOWN
     Route: 064
  2. MESALAZINE [Suspect]
     Active Substance: MESALAMINE
     Indication: FOETAL EXPOSURE DURING PREGNANCY
     Route: 064
  3. INFLIXIMAB [Suspect]
     Active Substance: INFLIXIMAB
     Indication: COLITIS ULCERATIVE
  4. MESALAZINE [Suspect]
     Active Substance: MESALAMINE
     Indication: COLITIS ULCERATIVE

REACTIONS (11)
  - Dermatitis diaper [Recovered/Resolved]
  - Oral candidiasis [Recovered/Resolved]
  - Tonsillitis [Recovered/Resolved]
  - Pharyngitis [Recovered/Resolved]
  - Foetal exposure during pregnancy [Recovered/Resolved]
  - Pyrexia [Unknown]
  - Neutropenia neonatal [Unknown]
  - Autoimmune neutropenia [Recovered/Resolved]
  - Neutropenia [Unknown]
  - Otitis media acute [Recovered/Resolved]
  - Respiratory tract infection [Recovered/Resolved]
